FAERS Safety Report 5302905-6 (Version None)
Quarter: 2007Q2

REPORT INFORMATION
  Report Type: 
  Country: None (occurrence: None)
  Receive Date: 20070420
  Receipt Date: 20070411
  Transmission Date: 20071010
  Serious: Yes (Hospitalization)
  Sender: FDA-Public Use
  Company Number: IT-BAYER-200712248GDS

PATIENT
  Age: 74 Year
  Sex: Male

DRUGS (2)
  1. SORAFENIB [Suspect]
     Indication: SARCOMA
     Dosage: TOTAL DAILY DOSE: 800 MG
     Route: 048
     Dates: start: 20070308, end: 20070319
  2. SORAFENIB [Suspect]
     Dosage: TOTAL DAILY DOSE: 400 MG
     Route: 048
     Dates: start: 20070320, end: 20070330

REACTIONS (3)
  - GENERAL PHYSICAL HEALTH DETERIORATION [None]
  - HYPERPYREXIA [None]
  - SEPSIS [None]
